FAERS Safety Report 7582604-0 (Version None)
Quarter: 2011Q2

REPORT INFORMATION
  Report Type: 
  Country: None (occurrence: None)
  Receive Date: 20110630
  Receipt Date: 20110623
  Transmission Date: 20111010
  Serious: Yes (Hospitalization)
  Sender: FDA-Public Use
  Company Number: TR-ROXANE LABORATORIES, INC.-2011-RO-00888RO

PATIENT
  Age: 5 Year
  Sex: Male

DRUGS (1)
  1. MYCOPHENOLATE MEFETIL [Suspect]
     Indication: AUTOIMMUNE LYMPHOPROLIFERATIVE SYNDROME

REACTIONS (1)
  - BENIGN INTRACRANIAL HYPERTENSION [None]
